FAERS Safety Report 5597877-3 (Version None)
Quarter: 2007Q4

REPORT INFORMATION
  Report Type: 
  Country: None (occurrence: None)
  Receive Date: 20071221
  Receipt Date: 20070511
  Transmission Date: 20080405
  Serious: Yes (Other)
  Sender: FDA-Public Use
  Company Number: US200705003288

PATIENT
  Age: 62 Year
  Sex: Female

DRUGS (2)
  1. HUMALOG [Suspect]
     Indication: DIABETES MELLITUS
     Dosage: SLIDING SCALE
  2. VALIUM [Concomitant]

REACTIONS (7)
  - BLOOD GLUCOSE DECREASED [None]
  - HEADACHE [None]
  - LOSS OF CONSCIOUSNESS [None]
  - MALAISE [None]
  - MENTAL IMPAIRMENT [None]
  - TREMOR [None]
  - VISUAL ACUITY REDUCED [None]
